FAERS Safety Report 9122098 (Version 1)
Quarter: 2013Q1

REPORT INFORMATION
  Report Type: Spontaneous
  Country: US (occurrence: None)
  Receive Date: 20130125
  Receipt Date: 20130125
  Transmission Date: 20140127
  Serious: No
  Sender: FDA-Public Use
  Company Number: 2012US-004430

PATIENT
  Sex: Male

DRUGS (2)
  1. OMONTYS (PEGINESATIDE) SOLUTION FOR INJECTION [Suspect]
     Indication: NEPHROGENIC ANAEMIA
  2. FLU VACCINE [Suspect]

REACTIONS (3)
  - Feeling abnormal [None]
  - Cold sweat [None]
  - Rhinorrhoea [None]
